FAERS Safety Report 9866416 (Version 1)
Quarter: 2014Q1

REPORT INFORMATION
  Report Type: Report from Study
  Country: US (occurrence: US)
  Receive Date: 20140204
  Receipt Date: 20140204
  Transmission Date: 20141002
  Serious: Yes (Hospitalization)
  Sender: FDA-Public Use
  Company Number: US-ROCHE-1316721

PATIENT
  Age: 78 Year
  Sex: Female
  Weight: 113.3 kg

DRUGS (40)
  1. AVASTIN [Suspect]
     Indication: UTERINE CANCER
     Dosage: IN 0.9% NACL. ON 07/SEP/2011, 27/SEP/2011, 20/OCT/2011, 10/NOV/2011 RECEIVED AT SAME DOSE.
     Route: 042
     Dates: start: 20110816
  2. AVASTIN [Suspect]
     Indication: MALIGNANT PLEURAL EFFUSION
  3. CARBOPLATIN [Suspect]
     Indication: UTERINE CANCER
     Route: 042
  4. GEMZAR [Concomitant]
     Route: 042
  5. PEPCID [Concomitant]
     Route: 040
     Dates: start: 20110816
  6. BENADRYL (UNITED STATES) [Concomitant]
     Route: 042
     Dates: start: 20110816
  7. BENADRYL (UNITED STATES) [Concomitant]
     Route: 065
     Dates: start: 20111110, end: 20111110
  8. BENADRYL (UNITED STATES) [Concomitant]
     Route: 040
     Dates: start: 20110816, end: 20110816
  9. DEXAMETHASONE [Concomitant]
     Route: 042
     Dates: start: 20110816
  10. DEXAMETHASONE [Concomitant]
     Route: 040
     Dates: start: 20110927, end: 20110927
  11. DEXAMETHASONE [Concomitant]
     Route: 040
     Dates: start: 20111020, end: 20111020
  12. DEXAMETHASONE [Concomitant]
     Route: 040
     Dates: start: 20111110, end: 20111110
  13. DEXAMETHASONE [Concomitant]
     Dosage: 10PM THE NIGHT BEFORE CHEMO AND 4AM THE MORNING OF
     Route: 048
     Dates: start: 20110907
  14. ZOFRAN [Concomitant]
     Route: 042
     Dates: start: 20110816
  15. MACRODANTIN [Concomitant]
     Route: 048
  16. ASPIRIN [Concomitant]
     Route: 048
  17. FUROSEMIDE [Concomitant]
     Dosage: MAY INCREASE TO 2 TABLETS DAILY IF NEEDED
     Route: 048
  18. FUROSEMIDE [Concomitant]
     Route: 048
     Dates: start: 20110907
  19. FUROSEMIDE [Concomitant]
     Route: 042
     Dates: start: 20111020, end: 20111020
  20. GARLIC [Concomitant]
     Route: 065
  21. VESICARE [Concomitant]
     Dosage: HS
     Route: 065
  22. VITAMIN E [Concomitant]
     Dosage: 200 UNIT CAP
     Route: 048
  23. VITAMIN E [Concomitant]
     Dosage: 400 UNITS
     Route: 048
  24. PARICALCITOL [Concomitant]
     Route: 065
  25. VITAMIN C [Concomitant]
     Route: 065
  26. FISH OIL [Concomitant]
     Route: 065
  27. FOSAMAX [Concomitant]
     Route: 065
  28. ALPHA TOCOFEROLACETATE [Concomitant]
     Dosage: 400 UNIT
     Route: 048
  29. CARDIZEM CD [Concomitant]
     Route: 048
  30. DIGOXIN [Concomitant]
     Dosage: 0.5 TABLET
     Route: 048
  31. DULOXETINE [Concomitant]
     Route: 048
  32. LANSOPRAZOLE [Concomitant]
     Route: 048
  33. TOLTERODINE [Concomitant]
     Dosage: DAILY AS NEEDED FOR URGE INCONTINENCE
     Route: 048
  34. TOPROL XL [Concomitant]
     Route: 048
  35. INFLUENZA VACCINE [Concomitant]
     Route: 030
     Dates: start: 20111020, end: 20111020
  36. COLACE [Concomitant]
     Route: 048
  37. PANTOPRAZOLE [Concomitant]
     Dosage: AT 6AM, ADMINISTER ON AN EMPTY STOMACH
     Route: 048
     Dates: start: 20111019, end: 20111021
  38. K-DUR [Concomitant]
     Route: 048
     Dates: start: 20111018, end: 20111018
  39. ENOXAPARIN [Concomitant]
     Route: 058
     Dates: start: 20111110
  40. HEPARIN [Concomitant]
     Dosage: 5000 UNITS
     Route: 058
     Dates: start: 20111018

REACTIONS (8)
  - Dyspnoea [Unknown]
  - Pleural effusion [Unknown]
  - Hypomagnesaemia [Unknown]
  - Pallor [Recovered/Resolved]
  - Pruritus [Unknown]
  - Pruritus [Unknown]
  - Erythema [Unknown]
  - Renal failure chronic [Unknown]
